FAERS Safety Report 8611655-X (Version None)
Quarter: 2012Q3

REPORT INFORMATION
  Report Type: 
  Country: None (occurrence: None)
  Receive Date: 20120822
  Receipt Date: 20120816
  Transmission Date: 20120928
  Serious: No
  Sender: FDA-Public Use
  Company Number: US-PFIZER INC-2012148961

PATIENT
  Age: 77 Year
  Sex: Female
  Weight: 74.83 kg

DRUGS (6)
  1. LYRICA [Suspect]
  2. LIPITOR [Concomitant]
     Dosage: UNK
  3. LYRICA [Suspect]
     Indication: NEUROPATHY PERIPHERAL
     Dosage: 75 MG, 1X/DAY
     Route: 048
     Dates: start: 20120101, end: 20120101
  4. DETROL [Concomitant]
     Dosage: UNK, 1X/DAY
  5. CELEBREX [Concomitant]
     Dosage: UNK
  6. LIPITOR [Concomitant]
     Dosage: 40 MG, UNK

REACTIONS (3)
  - DIZZINESS [None]
  - DRUG INTOLERANCE [None]
  - ACTIVITIES OF DAILY LIVING IMPAIRED [None]
